FAERS Safety Report 10189194 (Version 1)
Quarter: 2014Q2

REPORT INFORMATION
  Report Type: Spontaneous
  Country: FR (occurrence: FR)
  Receive Date: 20140522
  Receipt Date: 20140522
  Transmission Date: 20141212
  Serious: Yes (Hospitalization, Other)
  Sender: FDA-Public Use
  Company Number: FR-BAXTER-2014BAX024227

PATIENT
  Age: 65 Year
  Sex: Female

DRUGS (10)
  1. ENDOXAN 1000 MG, POUDRE POUR SOLUTION INJECTABLE [Suspect]
     Indication: BREAST CANCER
     Dosage: 1ST COURSE
     Route: 042
     Dates: start: 20140116
  2. ENDOXAN 1000 MG, POUDRE POUR SOLUTION INJECTABLE [Suspect]
     Dosage: 2ND COURSE
     Route: 042
     Dates: start: 20140206
  3. ENDOXAN 1000 MG, POUDRE POUR SOLUTION INJECTABLE [Suspect]
     Dosage: 3RD COURSE
     Route: 042
     Dates: start: 20140227
  4. DOCETAXEL [Suspect]
     Indication: BREAST CANCER
     Dosage: 1ST COURSE
     Route: 042
     Dates: start: 20140116
  5. DOCETAXEL [Suspect]
     Dosage: 2ND COURSE
     Route: 042
     Dates: start: 20140206
  6. DOCETAXEL [Suspect]
     Dosage: 3RD COURSE
     Route: 042
     Dates: start: 20140227
  7. GENTAMICINE [Suspect]
     Indication: FEBRILE BONE MARROW APLASIA
     Route: 042
     Dates: start: 20140305, end: 20140308
  8. AUGMENTIN [Suspect]
     Indication: FEBRILE BONE MARROW APLASIA
     Route: 042
     Dates: start: 20140303, end: 20140304
  9. TAZOCILLINE [Suspect]
     Indication: FEBRILE BONE MARROW APLASIA
     Route: 042
     Dates: start: 20140305, end: 20140308
  10. OFLOCET [Suspect]
     Indication: FEBRILE BONE MARROW APLASIA
     Route: 042
     Dates: start: 20140303, end: 20140304

REACTIONS (11)
  - Toxic epidermal necrolysis [Recovering/Resolving]
  - Febrile neutropenia [Unknown]
  - Escherichia sepsis [Unknown]
  - Escherichia urinary tract infection [Unknown]
  - Malnutrition [Unknown]
  - Multi-organ failure [Unknown]
  - Septic shock [Recovered/Resolved]
  - Pneumonia bacterial [Recovered/Resolved]
  - Stenotrophomonas sepsis [Recovering/Resolving]
  - Escherichia bacteraemia [Unknown]
  - Pneumonia [Unknown]
